FAERS Safety Report 7033268-6 (Version None)
Quarter: 2010Q4

REPORT INFORMATION
  Report Type: 
  Country: None (occurrence: None)
  Receive Date: 20101007
  Receipt Date: 20100928
  Transmission Date: 20110411
  Serious: Yes (Death)
  Sender: FDA-Public Use
  Company Number: A0881877A

PATIENT
  Age: 51 Year
  Sex: Female

DRUGS (5)
  1. TYKERB [Suspect]
     Dosage: 1250MG PER DAY
     Route: 048
     Dates: start: 20070901, end: 20100729
  2. KEPPRA [Concomitant]
     Route: 065
  3. TOPAMAX [Concomitant]
     Route: 065
  4. TRILEPTAL [Concomitant]
     Route: 065
  5. XELODA [Concomitant]
     Route: 065

REACTIONS (1)
  - MALIGNANT NEOPLASM PROGRESSION [None]
